FAERS Safety Report 26114140 (Version 1)
Quarter: 2025Q4

REPORT INFORMATION
  Report Type: Spontaneous
  Country: US (occurrence: US)
  Receive Date: 20251202
  Receipt Date: 20251202
  Transmission Date: 20260118
  Serious: No
  Sender: DEVA
  Company Number: US-DEVA-2025-US-051797

PATIENT
  Age: 80 Year
  Sex: Female
  Weight: 63.5 kg

DRUGS (3)
  1. ROSUVASTATIN [Concomitant]
     Active Substance: ROSUVASTATIN
  2. CARVEDILOL [Concomitant]
     Active Substance: CARVEDILOL
  3. CYCLOSPORINE OPHTHALMIC EMULSION [Suspect]
     Active Substance: CYCLOSPORINE
     Indication: Dry eye
     Dosage: 2 DROPS TO EYES IN THE MORNING AND 2 DROPS IN THE EVENING
     Dates: start: 20251113, end: 20251115

REACTIONS (2)
  - Vision blurred [Recovered/Resolved]
  - Eye pain [Recovered/Resolved]

NARRATIVE: CASE EVENT DATE: 20251113
